FAERS Safety Report 8436253 (Version 2)
Quarter: 2012Q4

REPORT INFORMATION
  Report Type: Report from Study
  Country: US (occurrence: US)
  Receive Date: 20120301
  Receipt Date: 20121018
  Transmission Date: 20130627
  Serious: Yes (Hospitalization, Other)
  Sender: FDA-Public Use
  Company Number: US-ABBOTT-12P-163-0909820-00

PATIENT
  Sex: Female
  Weight: 49.94 kg

DRUGS (2)
  1. HUMIRA 40 MG/0.8 ML PEN [Suspect]
     Indication: CROHN^S DISEASE
     Route: 050
     Dates: start: 201104
  2. IMURAN [Concomitant]
     Indication: PRODUCT USED FOR UNKNOWN INDICATION

REACTIONS (11)
  - Fistula [Unknown]
  - Abscess [Unknown]
  - Malnutrition [Unknown]
  - Hypophagia [Unknown]
  - Abdominal pain [Unknown]
  - Anaemia [Unknown]
  - Crohn^s disease [Unknown]
  - Bloody discharge [Unknown]
  - Gastrointestinal stoma complication [Unknown]
  - Gastrointestinal inflammation [Unknown]
  - Cholecystectomy [Unknown]
